FAERS Safety Report 25537849 (Version 2)
Quarter: 2025Q3

REPORT INFORMATION
  Report Type: Spontaneous
  Country: GB (occurrence: GB)
  Receive Date: 20250710
  Receipt Date: 20250715
  Transmission Date: 20251020
  Serious: No
  Sender: BAXTER
  Company Number: GB-BAXTER-2025BAX017827

PATIENT
  Age: 90 Year
  Sex: Female

DRUGS (4)
  1. SODIUM CHLORIDE [Suspect]
     Active Substance: SODIUM CHLORIDE
     Route: 042
     Dates: start: 20250702, end: 20250703
  2. SODIUM CHLORIDE [Suspect]
     Active Substance: SODIUM CHLORIDE
     Route: 042
     Dates: start: 20250702, end: 20250703
  3. CITRATE [Suspect]
     Active Substance: CITRIC ACID MONOHYDRATE
     Route: 042
     Dates: start: 20250702, end: 20250703
  4. PIPERACILLIN SODIUM\TAZOBACTAM SODIUM [Suspect]
     Active Substance: PIPERACILLIN SODIUM\TAZOBACTAM SODIUM
     Indication: Bronchiectasis
     Route: 042
     Dates: start: 20250702, end: 20250703

REACTIONS (3)
  - Erythema [Recovered/Resolved]
  - Inflammation [Recovered/Resolved]
  - Pruritus [Recovered/Resolved]

NARRATIVE: CASE EVENT DATE: 20250702
